FAERS Safety Report 5486668-X (Version None)
Quarter: 2007Q3

REPORT INFORMATION
  Report Type: 
  Country: None (occurrence: None)
  Receive Date: 20070925
  Receipt Date: 20070608
  Transmission Date: 20080115
  Serious: No
  Sender: FDA-Public Use
  Company Number: 2007US001215

PATIENT
  Age: 73 Year
  Sex: Female

DRUGS (3)
  1. VESICARE [Suspect]
     Indication: POLLAKIURIA
     Dosage: 5 MG, UID/QD
     Dates: start: 20070501, end: 20070501
  2. COUMADIN [Concomitant]
  3. LANOXIN [Concomitant]

REACTIONS (4)
  - CHAPPED LIPS [None]
  - DRY MOUTH [None]
  - PRURITUS GENERALISED [None]
  - URTICARIA [None]
